FAERS Safety Report 4706969-X (Version None)
Quarter: 2005Q2

REPORT INFORMATION
  Report Type: 
  Country: None (occurrence: None)
  Receive Date: 20050630
  Receipt Date: 20050617
  Transmission Date: 20051028
  Serious: Yes (Other)
  Sender: FDA-Public Use
  Company Number: 2005089706

PATIENT
  Sex: Male

DRUGS (1)
  1. UNISOM [Suspect]
     Dosage: 6 SOFT GELS AT ONCE, ORAL
     Route: 048
     Dates: start: 20050617, end: 20050617

REACTIONS (2)
  - OVERDOSE [None]
  - SOMNOLENCE [None]
